FAERS Safety Report 6100975-9 (Version None)
Quarter: 2009Q1

REPORT INFORMATION
  Report Type: 
  Country: None (occurrence: None)
  Receive Date: 20090304
  Receipt Date: 20090224
  Transmission Date: 20090719
  Serious: Yes (Other)
  Sender: FDA-Public Use
  Company Number: US-AMGEN-QUU335536

PATIENT
  Sex: Female
  Weight: 64.5 kg

DRUGS (16)
  1. ENBREL [Suspect]
     Indication: RHEUMATOID ARTHRITIS
     Route: 058
  2. PREDNISONE [Concomitant]
     Route: 048
  3. SULFASALAZINE [Concomitant]
     Route: 048
  4. SULFASALAZINE [Concomitant]
  5. SULFASALAZINE [Concomitant]
  6. PLAQUENIL [Concomitant]
     Route: 048
  7. VOLTAREN [Concomitant]
     Route: 048
  8. POTASSIUM CHLORIDE [Concomitant]
     Route: 048
  9. FLUOXETINE [Concomitant]
     Route: 048
  10. IMITREX [Concomitant]
     Route: 055
  11. METHADONE HCL [Concomitant]
     Route: 048
  12. KLONOPIN [Concomitant]
     Route: 048
  13. DILAUDID [Concomitant]
     Route: 048
  14. LYRICA [Concomitant]
     Route: 048
  15. MULTI-VITAMINS [Concomitant]
  16. AFRIN [Concomitant]
     Route: 045

REACTIONS (4)
  - ANAEMIA OF CHRONIC DISEASE [None]
  - HERPES ZOSTER [None]
  - JOINT ARTHROPLASTY [None]
  - MULTIPLE FRACTURES [None]
